FAERS Safety Report 17419532 (Version 2)
Quarter: 2022Q2

REPORT INFORMATION
  Report Type: Spontaneous
  Country: GR (occurrence: GR)
  Receive Date: 20200214
  Receipt Date: 20220502
  Transmission Date: 20220721
  Serious: Yes (Hospitalization, Other)
  Sender: FDA-Public Use
  Company Number: GR-VIIV HEALTHCARE LIMITED-GR2019EME222486

PATIENT
  Age: 23 Year
  Sex: Male

DRUGS (25)
  1. EMTRICITABINE\TENOFOVIR DISOPROXIL FUMARATE [Suspect]
     Active Substance: EMTRICITABINE\TENOFOVIR DISOPROXIL FUMARATE
     Indication: HIV infection
     Dosage: UNK UNK, QD (245 + 200 MG)
  2. AMOXICILLIN\CLAVULANIC ACID [Suspect]
     Active Substance: AMOXICILLIN\CLAVULANIC ACID
     Indication: Pyrexia
     Dosage: UNK
  3. CLINDAMYCIN [Suspect]
     Active Substance: CLINDAMYCIN
     Indication: Pyrexia
     Dosage: UNK
  4. DOLUTEGRAVIR [Suspect]
     Active Substance: DOLUTEGRAVIR
     Indication: HIV infection
     Dosage: 100 MILLIGRAM, QD (50 MG, BID)
  5. AMPICILLIN SODIUM\SULBACTAM SODIUM [Suspect]
     Active Substance: AMPICILLIN SODIUM\SULBACTAM SODIUM
     Indication: Pyrexia
     Dosage: UNK
  6. CEFUROXIME [Suspect]
     Active Substance: CEFUROXIME
     Indication: Lymphadenopathy
     Dosage: UNK
  7. DOXYCYCLINE [Suspect]
     Active Substance: DOXYCYCLINE
     Indication: Pyrexia
     Dosage: UNK
  8. DOXYCYCLINE [Suspect]
     Active Substance: DOXYCYCLINE
     Indication: Lymphadenopathy
     Dosage: UNK
  9. SULFAMETHOXAZOLE\TRIMETHOPRIM [Concomitant]
     Active Substance: SULFAMETHOXAZOLE\TRIMETHOPRIM
     Indication: CD4 lymphocytes abnormal
     Dosage: 960 MILLIGRAM, Q3W THREE TIMES PER WEEK
  10. SULFAMETHOXAZOLE\TRIMETHOPRIM [Concomitant]
     Active Substance: SULFAMETHOXAZOLE\TRIMETHOPRIM
     Indication: Antifungal prophylaxis
  11. FLUCONAZOLE [Concomitant]
     Active Substance: FLUCONAZOLE
     Indication: Oral candidiasis
     Dosage: 100 MILLIGRAM, QD
  12. FLUCONAZOLE [Concomitant]
     Active Substance: FLUCONAZOLE
     Indication: Oropharyngeal candidiasis
  13. PYRAZINAMIDE [Concomitant]
     Active Substance: PYRAZINAMIDE
     Indication: Tuberculosis
     Dosage: UNK
  14. PYRAZINAMIDE [Concomitant]
     Active Substance: PYRAZINAMIDE
     Dosage: 1500 MILLIGRAM
     Route: 048
  15. ETHAMBUTOL [Concomitant]
     Active Substance: ETHAMBUTOL HYDROCHLORIDE
     Indication: Tuberculosis
     Dosage: UNK
  16. ETHAMBUTOL [Concomitant]
     Active Substance: ETHAMBUTOL HYDROCHLORIDE
     Dosage: 1500 MILLIGRAM
     Route: 048
  17. ISONIAZID [Concomitant]
     Active Substance: ISONIAZID
     Indication: Tuberculosis
     Dosage: UNK
  18. ISONIAZID [Concomitant]
     Active Substance: ISONIAZID
     Dosage: 300 MILLIGRAM
     Route: 048
  19. RIFAMPIN [Concomitant]
     Active Substance: RIFAMPIN
     Indication: Tuberculosis
     Dosage: UNK
  20. RIFAMPIN [Concomitant]
     Active Substance: RIFAMPIN
     Dosage: 600 MILLIGRAM
     Route: 048
  21. PYRIDOXINE [Concomitant]
     Active Substance: PYRIDOXINE
     Indication: Tuberculosis
     Dosage: 50 MILLIGRAM, QD
     Route: 048
  22. CLINDAMYCIN [Concomitant]
     Active Substance: CLINDAMYCIN
     Indication: Evidence based treatment
     Dosage: 1800 MILLIGRAM, QD (600 MILLIGRAM, TID )
  23. AMOXICILLIN\CLAVULANIC ACID [Concomitant]
     Active Substance: AMOXICILLIN\CLAVULANIC ACID
     Indication: Pyrexia
     Dosage: UNK
  24. AMPICILLIN SODIUM\SULBACTAM SODIUM [Concomitant]
     Active Substance: AMPICILLIN SODIUM\SULBACTAM SODIUM
     Indication: Evidence based treatment
     Dosage: 12 MILLIGRAM, QD (3 G, QID  )
     Route: 042
  25. NEUROBION [Concomitant]
     Active Substance: CYANOCOBALAMIN\PYRIDOXINE\THIAMINE
     Indication: Tuberculosis
     Dosage: UNK

REACTIONS (11)
  - Lymphadenopathy [Recovered/Resolved]
  - Immune reconstitution inflammatory syndrome associated tuberculosis [Recovered/Resolved]
  - Pyrexia [Recovered/Resolved]
  - Fatigue [Recovered/Resolved]
  - Cat scratch disease [Recovered/Resolved]
  - Condition aggravated [Recovered/Resolved]
  - Therapy non-responder [Unknown]
  - Neck pain [Recovered/Resolved]
  - Splenomegaly [Recovered/Resolved]
  - Lymph node pain [Recovered/Resolved]
  - Erythema [Recovered/Resolved]
